FAERS Safety Report 18186441 (Version 1)
Quarter: 2020Q3

REPORT INFORMATION
  Report Type: Spontaneous
  Country: US (occurrence: US)
  Receive Date: 20200821
  Receipt Date: 20200821
  Transmission Date: 20201103
  Serious: Yes (Hospitalization)
  Sender: FDA-Public Use
  Company Number: None

PATIENT
  Age: 41 Year
  Sex: Male

DRUGS (1)
  1. AUSTEDO [Suspect]
     Active Substance: DEUTETRABENAZINE
     Indication: INSOMNIA
     Dosage: FROM  SEE EVENT TO CURRENT
     Route: 048

REACTIONS (1)
  - Hypertension [None]

NARRATIVE: CASE EVENT DATE: 20200807
